FAERS Safety Report 21837851 (Version 1)
Quarter: 2023Q1

REPORT INFORMATION
  Report Type: Other
  Country: IL (occurrence: IL)
  Receive Date: 20230109
  Receipt Date: 20230109
  Transmission Date: 20230418
  Serious: Yes (Hospitalization, Other)
  Sender: FDA-Public Use
  Company Number: IL-DEXPHARM-20222697

PATIENT
  Age: 67 Year
  Sex: Male
  Weight: 86 kg

DRUGS (4)
  1. FUROSEMIDE [Interacting]
     Active Substance: FUROSEMIDE
  2. CIPROFLOXACIN [Interacting]
     Active Substance: CIPROFLOXACIN
  3. OMEPRAZOLE [Interacting]
     Active Substance: OMEPRAZOLE
  4. METHOTREXATE [Interacting]
     Active Substance: METHOTREXATE

REACTIONS (3)
  - Drug interaction [Recovered/Resolved]
  - Acute kidney injury [Recovered/Resolved]
  - Drug level increased [Recovered/Resolved]
